FAERS Safety Report 10575673 (Version 3)
Quarter: 2015Q1

REPORT INFORMATION
  Report Type: Spontaneous
  Country: US (occurrence: US)
  Receive Date: 20141111
  Receipt Date: 20150121
  Transmission Date: 20150720
  Serious: No
  Sender: FDA-Public Use
  Company Number: US-PFIZER INC-2014307497

PATIENT
  Age: 41 Year
  Sex: Female
  Weight: 79 kg

DRUGS (3)
  1. LISINOPRIL. [Concomitant]
     Active Substance: LISINOPRIL
     Indication: HYPERTENSION
     Dosage: UNK
     Dates: start: 201408
  2. CHANTIX [Suspect]
     Active Substance: VARENICLINE TARTRATE
     Dosage: 0.5 MG, 2X/DAY (DAYS 4-7)
     Dates: start: 2014, end: 201408
  3. CHANTIX [Suspect]
     Active Substance: VARENICLINE TARTRATE
     Indication: SMOKING CESSATION THERAPY
     Dosage: 0.5 MG, 1X/DAY (FIRST THREE DAYS)
     Dates: start: 2014, end: 2014

REACTIONS (2)
  - Malaise [Recovering/Resolving]
  - Ear infection [Recovered/Resolved]

NARRATIVE: CASE EVENT DATE: 2014
